FAERS Safety Report 11219318 (Version 1)
Quarter: 2015Q2

REPORT INFORMATION
  Report Type: Spontaneous
  Country: US (occurrence: US)
  Receive Date: 20150625
  Receipt Date: 20150625
  Transmission Date: 20150821
  Serious: Yes (Hospitalization)
  Sender: FDA-Public Use
  Company Number: US-B.I. PHARMACEUTICALS,INC./RIDGEFIELD-2015-BI-32951BP

PATIENT
  Age: 59 Year
  Sex: Male
  Weight: 54 kg

DRUGS (6)
  1. COMBIVENT [Suspect]
     Active Substance: ALBUTEROL SULFATE\IPRATROPIUM BROMIDE
     Indication: BRONCHITIS CHRONIC
     Dosage: STRENGTH: 18 MCG / 103 MCG; DAILY DOSE: 144 MCG/824 MCG
     Route: 055
     Dates: start: 1994, end: 2013
  2. SEREVENT DISKUS [Concomitant]
     Active Substance: SALMETEROL XINAFOATE
     Indication: BRONCHITIS CHRONIC
     Dosage: 2 PUF
     Route: 055
     Dates: start: 2004
  3. ALBUTEROL. [Concomitant]
     Active Substance: ALBUTEROL
     Indication: BRONCHITIS CHRONIC
     Dosage: 4 MG
     Route: 048
     Dates: start: 2004
  4. ATROVENT [Suspect]
     Active Substance: IPRATROPIUM BROMIDE
     Indication: BRONCHITIS CHRONIC
     Dosage: 68 MCG
     Route: 055
     Dates: start: 2004, end: 2013
  5. COMBIVENT [Suspect]
     Active Substance: ALBUTEROL SULFATE\IPRATROPIUM BROMIDE
     Indication: BRONCHITIS CHRONIC
     Dosage: STRENGTH: 20 MCG / 100 MCG; DAILY DOSE: 80 MCG/400 MCG
     Route: 055
     Dates: start: 2013
  6. THEOPHYLLINE [Concomitant]
     Active Substance: THEOPHYLLINE ANHYDROUS
     Indication: BRONCHITIS CHRONIC
     Dosage: 900 MG
     Route: 048
     Dates: start: 2004

REACTIONS (5)
  - Pneumonia [Not Recovered/Not Resolved]
  - Haemoptysis [Recovered/Resolved]
  - Bacterial infection [Not Recovered/Not Resolved]
  - Pleurisy [Not Recovered/Not Resolved]
  - Bronchitis [Not Recovered/Not Resolved]

NARRATIVE: CASE EVENT DATE: 201405
